FAERS Safety Report 16036636 (Version 1)
Quarter: 2019Q1

REPORT INFORMATION
  Report Type: Spontaneous
  Country: US (occurrence: US)
  Receive Date: 20190305
  Receipt Date: 20190305
  Transmission Date: 20190418
  Serious: No
  Sender: FDA-Public Use
  Company Number: US-IMPAX LABORATORIES, LLC-2018-IPXL-03149

PATIENT
  Sex: Male
  Weight: 66 kg

DRUGS (19)
  1. NITROGLYCERINE [Concomitant]
     Active Substance: NITROGLYCERIN
     Indication: ANGINA PECTORIS
     Dosage: 1 TABLET, AS NEEDED
     Route: 060
     Dates: start: 2008
  2. VITAMIN A [Concomitant]
     Active Substance: VITAMIN A
     Indication: VITAMIN SUPPLEMENTATION
     Dosage: 1 CAPSULE, QD
     Route: 048
     Dates: start: 2013
  3. TAMSULOSIN [Concomitant]
     Active Substance: TAMSULOSIN
     Indication: PROSTATOMEGALY
     Dosage: 1 CAPSULE, BID
     Route: 048
     Dates: start: 2014
  4. DICYCLOMINE [Concomitant]
     Active Substance: DICYCLOMINE HYDROCHLORIDE
     Indication: ABDOMINAL DISCOMFORT
     Dosage: 1 TABLET, AS NEEDED
     Route: 048
     Dates: start: 201806
  5. RYTARY [Suspect]
     Active Substance: CARBIDOPA\LEVODOPA
     Dosage: 23.75/95 MG, TWO CAPSULES, THREE TIMES A DAY
     Route: 048
     Dates: start: 201808, end: 20180919
  6. RANEXA [Concomitant]
     Active Substance: RANOLAZINE
     Indication: ANGINA PECTORIS
     Dosage: 1000 MG, BID
     Route: 048
     Dates: start: 2013
  7. MORPHINE [Concomitant]
     Active Substance: MORPHINE
     Indication: GROIN PAIN
     Dosage: UNK, AS NEEDED, PUMP
     Route: 065
     Dates: start: 1998
  8. LASIX [Concomitant]
     Active Substance: FUROSEMIDE
     Indication: FLUID RETENTION
     Dosage: 40 MG, QD
     Route: 048
     Dates: start: 2017
  9. PLAVIX [Concomitant]
     Active Substance: CLOPIDOGREL BISULFATE
     Indication: ANTICOAGULANT THERAPY
     Dosage: 75 MG, QD
     Route: 048
     Dates: start: 2015
  10. LIPITOR [Concomitant]
     Active Substance: ATORVASTATIN CALCIUM
     Indication: BLOOD CHOLESTEROL INCREASED
     Dosage: 40 MG, QD
     Route: 048
     Dates: start: 2017
  11. CALCIUM [Concomitant]
     Active Substance: CALCIUM
     Indication: MINERAL SUPPLEMENTATION
     Dosage: 1 TABLET, QD
     Route: 048
     Dates: start: 2013
  12. LASIX [Concomitant]
     Active Substance: FUROSEMIDE
     Indication: OEDEMA
  13. METOPROLOL. [Concomitant]
     Active Substance: METOPROLOL
     Indication: CARDIAC DISORDER
     Dosage: 1 TABLET, QD
     Route: 048
     Dates: start: 2017
  14. IMDUR [Concomitant]
     Active Substance: ISOSORBIDE MONONITRATE
     Indication: ANGINA PECTORIS
     Dosage: 120 MG, QD
     Route: 048
     Dates: start: 2017
  15. TESTOSTERONE. [Concomitant]
     Active Substance: TESTOSTERONE
     Indication: HORMONE REPLACEMENT THERAPY
     Dosage: UNK, AS DIRECTED
     Route: 030
     Dates: start: 2013
  16. VITAMIN D3 [Concomitant]
     Active Substance: CHOLECALCIFEROL
     Indication: VITAMIN SUPPLEMENTATION
     Dosage: 1 CAPSULE, QD
     Route: 048
     Dates: start: 2013
  17. RYTARY [Suspect]
     Active Substance: CARBIDOPA\LEVODOPA
     Indication: PARKINSON^S DISEASE
     Dosage: 23.75/95 MG, ONE CAPSULE, THREE TIMES A DAY
     Route: 048
     Dates: start: 20180808, end: 201808
  18. ZOFRAN [Concomitant]
     Active Substance: ONDANSETRON HYDROCHLORIDE
     Indication: NAUSEA
     Dosage: 1 TABLET AS NEEDED
     Route: 048
     Dates: start: 201806
  19. NEXIUM [Concomitant]
     Active Substance: ESOMEPRAZOLE MAGNESIUM
     Indication: ABDOMINAL DISCOMFORT
     Dosage: 1 CAPSULE, QD
     Route: 048
     Dates: start: 2013

REACTIONS (6)
  - Constipation [Unknown]
  - Anxiety [Not Recovered/Not Resolved]
  - Adverse event [Unknown]
  - Confusional state [Not Recovered/Not Resolved]
  - Chromaturia [Not Recovered/Not Resolved]
  - Depression [Not Recovered/Not Resolved]

NARRATIVE: CASE EVENT DATE: 2018
